FAERS Safety Report 6143932-9 (Version None)
Quarter: 2009Q2

REPORT INFORMATION
  Report Type: 
  Country: None (occurrence: None)
  Receive Date: 20090406
  Receipt Date: 20090325
  Transmission Date: 20091009
  Serious: Yes (Hospitalization)
  Sender: FDA-Public Use
  Company Number: JP-PFIZER INC-2009189802

PATIENT

DRUGS (3)
  1. SUNITINIB MALATE [Suspect]
     Indication: RENAL CELL CARCINOMA
     Dosage: 50 MG, 1X/DAY
     Route: 048
     Dates: start: 20090107
  2. ZOMETA [Concomitant]
     Route: 042
  3. NORVASC [Concomitant]
     Dosage: UNK
     Route: 048
     Dates: start: 20090114

REACTIONS (2)
  - MALAISE [None]
  - PLATELET COUNT DECREASED [None]
